FAERS Safety Report 20085705 (Version 1)
Quarter: 2021Q4

REPORT INFORMATION
  Report Type: Report from Study
  Country: ES (occurrence: ES)
  Receive Date: 20211118
  Receipt Date: 20211118
  Transmission Date: 20220303
  Serious: Yes (Other)
  Sender: FDA-Public Use
  Company Number: ES-TEVA-2021-ES-1977346

PATIENT
  Age: 65 Year
  Sex: Male

DRUGS (3)
  1. PACLITAXEL [Suspect]
     Active Substance: PACLITAXEL
     Indication: Squamous cell carcinoma of head and neck
     Dosage: 80MG/M2
     Route: 065
  2. CETUXIMAB [Suspect]
     Active Substance: CETUXIMAB
     Indication: Squamous cell carcinoma of head and neck
     Dosage: 400MG/M2 WEEKLY ONCE LOADING DOSE
     Route: 065
  3. CETUXIMAB [Suspect]
     Active Substance: CETUXIMAB
     Dosage: 250MG/M2 MAINTENANCE DOSE
     Route: 065

REACTIONS (11)
  - Neuropathy peripheral [Unknown]
  - Tumour haemorrhage [Recovering/Resolving]
  - Neutropenia [Unknown]
  - Thrombocytopenia [Unknown]
  - Pneumonia aspiration [Unknown]
  - Anaemia [Unknown]
  - Hypomagnesaemia [Unknown]
  - Mucosal inflammation [Unknown]
  - Diarrhoea [Unknown]
  - Dermatitis acneiform [Unknown]
  - Asthenia [Unknown]
